FAERS Safety Report 10410120 (Version 5)
Quarter: 2015Q2

REPORT INFORMATION
  Report Type: Spontaneous
  Country: US (occurrence: US)
  Receive Date: 20140826
  Receipt Date: 20150611
  Transmission Date: 20150821
  Serious: No
  Sender: FDA-Public Use
  Company Number: US-PFIZER INC-2014235120

PATIENT
  Age: 48 Year
  Sex: Female

DRUGS (7)
  1. ALBUTEROL SULFATE HFA [Concomitant]
     Dosage: 2 UNK, AS NEEDED(108 (90 BASE) MCG/ACT)(2 PUFFS AS NEEDED INHALATION EVERY 4 HRS)
     Route: 045
     Dates: start: 20110504
  2. AMITRIPTYLINE HCL [Concomitant]
     Active Substance: AMITRIPTYLINE
     Dosage: 1 DF, 1X/DAY (10 MG TABLET/BEDTIME)
     Route: 048
     Dates: start: 20140827
  3. CELEXA [Concomitant]
     Active Substance: CITALOPRAM HYDROBROMIDE
     Dosage: 1 DF, 1X/DAY(20 MG TABLET)
     Route: 048
     Dates: start: 20130506
  4. LYRICA [Suspect]
     Active Substance: PREGABALIN
     Indication: NEUROPATHY PERIPHERAL
     Dosage: 50 MG, 3X/DAY
     Route: 048
     Dates: start: 20130506
  5. LISINOPRIL-HYDROCHLOROTHIAZIDE [Concomitant]
     Active Substance: HYDROCHLOROTHIAZIDE\LISINOPRIL
     Dosage: 1 DF, 1X/DAY (20-25 MG TABLET)
     Route: 048
     Dates: start: 20130506
  6. SYNTHROID [Concomitant]
     Active Substance: LEVOTHYROXINE SODIUM
     Dosage: 1 DF, DAILY(75 MCG TABLET)
     Route: 048
     Dates: start: 20110701
  7. JANUMET [Concomitant]
     Active Substance: METFORMIN HYDROCHLORIDE\SITAGLIPTIN PHOSPHATE
     Dosage: 1 DF, 2X/DAY (METFORMIN HYDROCHLORIDE 1000 MG+SITAGLIPTIN PHOSPHATE MONOHYDRATE 50 MG)
     Route: 048

REACTIONS (4)
  - Withdrawal syndrome [Recovered/Resolved]
  - Pruritus [Unknown]
  - Feeling abnormal [Unknown]
  - Formication [Unknown]
